FAERS Safety Report 15256980 (Version 1)
Quarter: 2018Q3

REPORT INFORMATION
  Report Type: Spontaneous
  Country: US (occurrence: US)
  Receive Date: 20180808
  Receipt Date: 20180808
  Transmission Date: 20181010
  Serious: No
  Sender: FDA-Public Use
  Company Number: US-TELIGENT, INC-IGIL20180430

PATIENT
  Age: 75 Year
  Sex: Male

DRUGS (2)
  1. TRIAMCINOLONE ACTEONIDE [Suspect]
     Active Substance: TRIAMCINOLONE ACETONIDE
     Indication: PRURITUS
     Dosage: UNKNOWN
     Route: 061
     Dates: start: 20180803
  2. TRIAMCINOLONE ACTEONIDE [Suspect]
     Active Substance: TRIAMCINOLONE ACETONIDE
     Indication: SKIN IRRITATION

REACTIONS (3)
  - Exposure via eye contact [None]
  - Accidental exposure to product [None]
  - Ocular hyperaemia [Not Recovered/Not Resolved]

NARRATIVE: CASE EVENT DATE: 20180804
